FAERS Safety Report 12567089 (Version 6)
Quarter: 2018Q3

REPORT INFORMATION
  Report Type: Spontaneous
  Country: US (occurrence: US)
  Receive Date: 20160718
  Receipt Date: 20180903
  Transmission Date: 20181010
  Serious: No
  Sender: FDA-Public Use
  Company Number: US-PFIZER INC-2016342805

PATIENT
  Age: 54 Year
  Sex: Female
  Weight: 103.42 kg

DRUGS (20)
  1. LYRICA [Suspect]
     Active Substance: PREGABALIN
     Indication: FIBROMYALGIA
     Dosage: 75MG, TAKE 1 TO 2 CAPSULES THREE TIMES A DAY
     Route: 048
     Dates: start: 2015
  2. LYRICA [Suspect]
     Active Substance: PREGABALIN
     Dosage: 225 MG, 4X/DAY
     Route: 048
  3. ALPRAZOLAM. [Concomitant]
     Active Substance: ALPRAZOLAM
     Dosage: 1 MG, 2X/DAY
  4. PRAVASTATIN SODIUM. [Concomitant]
     Active Substance: PRAVASTATIN SODIUM
     Dosage: 20 MG, 1X/DAY
  5. CYMBALTA [Concomitant]
     Active Substance: DULOXETINE HYDROCHLORIDE
     Dosage: 60 MG, 1X/DAY
     Route: 048
  6. LYRICA [Suspect]
     Active Substance: PREGABALIN
     Dosage: 225 MG, 3X/DAY
     Route: 048
     Dates: start: 20160301
  7. LYRICA [Suspect]
     Active Substance: PREGABALIN
     Dosage: 75 MG, 2X/DAY
     Route: 048
  8. TRIAMTERENE AND HYDROCHLOROTHIAZIDE [Concomitant]
     Active Substance: HYDROCHLOROTHIAZIDE\TRIAMTERENE
     Dosage: [HYDROCHLOROTHIAZIDE 25MG]/[TRIAMTERENE 37.5MG], 1X/DAY (37.5/25 MG 1 EVERY MORNING)
  9. METOPROLOL TARTRATE. [Concomitant]
     Active Substance: METOPROLOL TARTRATE
     Dosage: 25 MG, 2X/DAY
  10. ALPRAZOLAM. [Concomitant]
     Active Substance: ALPRAZOLAM
     Dosage: 1 MG, 3X/DAY
  11. FENTANYL. [Concomitant]
     Active Substance: FENTANYL
     Dosage: 100 UG, AS NEEDED
  12. MONTELUKAST SODIUM. [Concomitant]
     Active Substance: MONTELUKAST SODIUM
     Dosage: 10 MG, 1X/DAY (10MG QPM)(10 MG TABLET 1 TABLET IN THE EVENING)
  13. OXYCODONE HYDROCHLORIDE. [Concomitant]
     Active Substance: OXYCODONE HYDROCHLORIDE
     Dosage: AS NEEDED (10 MG 1 EVERY 6 HOURS PRN) (1 TABLET AS NEEDED EVERY 6 HRS)
  14. LYRICA [Suspect]
     Active Substance: PREGABALIN
     Dosage: 75 MG CAPSULE 1 TO 2 CAPSULE, 3X/DAY
     Route: 048
  15. IBUPROFEN. [Concomitant]
     Active Substance: IBUPROFEN
     Dosage: 800 MG, 3X/DAY
  16. IBUPROFEN. [Concomitant]
     Active Substance: IBUPROFEN
     Dosage: 800 MG, AS NEEDED
  17. SYMBICORT [Concomitant]
     Active Substance: BUDESONIDE\FORMOTEROL FUMARATE DIHYDRATE
     Dosage: 2 DF, 2X/DAY (160/4.5 MCG/ACT AEROSOL 2 PUFFS TWICE A DAY)
  18. LYRICA [Suspect]
     Active Substance: PREGABALIN
     Dosage: 225 MG CAPSULE (1 CAPSULE) 4X/DAY
     Route: 048
  19. AMITRIPTYLINE HCL [Concomitant]
     Active Substance: AMITRIPTYLINE
     Dosage: 50 MG, 1X/DAY (50MG 1 QHS) (50 MG TABLET 1 TABLET AT BED TIME ONCE A DAY)
  20. METFORMIN HCL [Concomitant]
     Active Substance: METFORMIN HYDROCHLORIDE
     Dosage: 500 MG, 2X/DAY (1 TABLET WITH MEALS TWICE A DAY)

REACTIONS (18)
  - Sleep disorder [Not Recovered/Not Resolved]
  - Wheezing [Unknown]
  - Rash [Unknown]
  - Drug dispensing error [Unknown]
  - Muscle spasms [Unknown]
  - Drug effect incomplete [Unknown]
  - Night sweats [Unknown]
  - Eye pain [Unknown]
  - Weight increased [Unknown]
  - Joint swelling [Recovered/Resolved]
  - Dry mouth [Unknown]
  - Oedema peripheral [Unknown]
  - Asthenia [Unknown]
  - Prescribed overdose [Unknown]
  - Musculoskeletal stiffness [Not Recovered/Not Resolved]
  - Muscular weakness [Unknown]
  - Nocturia [Unknown]
  - Vulvovaginal dryness [Unknown]

NARRATIVE: CASE EVENT DATE: 20160301
